FAERS Safety Report 6769490-3 (Version None)
Quarter: 2010Q2

REPORT INFORMATION
  Report Type: 
  Country: None (occurrence: None)
  Receive Date: 20100615
  Receipt Date: 20100603
  Transmission Date: 20101027
  Serious: Yes (Hospitalization)
  Sender: FDA-Public Use
  Company Number: CH-SANOFI-AVENTIS-2010SA032061

PATIENT
  Age: 73 Year
  Sex: Female
  Weight: 60 kg

DRUGS (9)
  1. MULTAQ [Suspect]
     Indication: ATRIAL FIBRILLATION
     Route: 048
     Dates: start: 20100313, end: 20100422
  2. MULTAQ [Interacting]
     Indication: ATRIAL FLUTTER
     Route: 048
     Dates: start: 20100313, end: 20100422
  3. DEANXIT [Interacting]
     Indication: DRUG USE FOR UNKNOWN INDICATION
     Route: 048
  4. MARCUMAR [Concomitant]
     Indication: DRUG USE FOR UNKNOWN INDICATION
     Dosage: DOSE:1 UNIT(S)
  5. DIOVAN HCT [Concomitant]
     Indication: DRUG USE FOR UNKNOWN INDICATION
     Route: 048
  6. METOPROLOL SUCCINATE [Concomitant]
     Indication: DRUG USE FOR UNKNOWN INDICATION
     Route: 048
  7. TORSEMIDE [Concomitant]
     Indication: DRUG USE FOR UNKNOWN INDICATION
     Route: 048
  8. LEVOTHYROXINE SODIUM [Concomitant]
     Indication: DRUG USE FOR UNKNOWN INDICATION
     Route: 048
  9. CALCIMAGON-D3 [Concomitant]
     Indication: DRUG USE FOR UNKNOWN INDICATION
     Route: 048

REACTIONS (5)
  - ANAEMIA [None]
  - DRUG INTERACTION [None]
  - LEUKOPENIA [None]
  - MALAISE [None]
  - MIXED LIVER INJURY [None]
